FAERS Safety Report 13288876 (Version 3)
Quarter: 2017Q2

REPORT INFORMATION
  Report Type: Spontaneous
  Country: ES (occurrence: ES)
  Receive Date: 20170302
  Receipt Date: 20170427
  Transmission Date: 20170830
  Serious: Yes (Other)
  Sender: FDA-Public Use
  Company Number: ES-AMGEN-ESPSP2017013060

PATIENT
  Age: 72 Year
  Sex: Female

DRUGS (10)
  1. ENBREL [Suspect]
     Active Substance: ETANERCEPT
     Indication: RHEUMATOID ARTHRITIS
     Dosage: 50 MG, WEEKLY
     Route: 058
     Dates: start: 20161223, end: 20170127
  2. LEXATIN [Concomitant]
     Active Substance: BROMAZEPAM
     Indication: NERVOUSNESS
     Dosage: 3 MG, 2X/DAY
  3. ENBREL [Suspect]
     Active Substance: ETANERCEPT
     Dosage: 50 MG, WEEKLY (ON MONDAYS)
     Route: 058
  4. ENBREL [Suspect]
     Active Substance: ETANERCEPT
     Dosage: 50 MG, WEEKLY
     Route: 058
     Dates: start: 20170203
  5. LEFLUARTIL [Concomitant]
     Indication: OSTEOARTHRITIS
  6. ENBREL [Suspect]
     Active Substance: ETANERCEPT
     Dosage: 50 MG, WEEKLY (ON FRIDAYS)
     Route: 058
  7. LEFLUARTIL [Concomitant]
     Indication: ARTHRITIS
     Dosage: 20 MG, 1X/DAY
  8. PREDNISONE. [Concomitant]
     Active Substance: PREDNISONE
     Indication: ARTHRITIS
     Dosage: 5 MG, 1X/DAY
  9. PREDNISONE. [Concomitant]
     Active Substance: PREDNISONE
     Indication: OSTEOARTHRITIS
     Dosage: 2.5 MG, 1X/DAY
  10. LEXATIN [Concomitant]
     Active Substance: BROMAZEPAM
     Indication: SLEEP DISORDER
     Dosage: 3 MG, 1X/DAY

REACTIONS (9)
  - Vocal cord inflammation [Not Recovered/Not Resolved]
  - Injection site erythema [Recovered/Resolved with Sequelae]
  - Injection site haemorrhage [Unknown]
  - Viral upper respiratory tract infection [Recovered/Resolved]
  - Injection site reaction [Unknown]
  - Nervousness [Unknown]
  - Influenza [Recovered/Resolved]
  - Blood pressure increased [Recovered/Resolved]
  - Injection site pruritus [Unknown]

NARRATIVE: CASE EVENT DATE: 2017
